FAERS Safety Report 7485958-9 (Version None)
Quarter: 2011Q2

REPORT INFORMATION
  Report Type: 
  Country: None (occurrence: None)
  Receive Date: 20110517
  Receipt Date: 20110512
  Transmission Date: 20111010
  Serious: Yes (Other)
  Sender: FDA-Public Use
  Company Number: CA-PFIZER INC-2011032592

PATIENT
  Age: 67 Year
  Sex: Male
  Weight: 81.633 kg

DRUGS (5)
  1. NORVASC [Suspect]
     Indication: BLOOD PRESSURE
     Dosage: 5 MG, 1X/DAY IN MORNING
     Dates: start: 20071018, end: 20090101
  2. ACETAMINOPHEN [Concomitant]
     Indication: OSTEOARTHRITIS
     Dosage: ONE AS NEEDED
     Dates: start: 20100101
  3. NORVASC [Suspect]
     Dosage: 10 MG, 1X/DAY IN MORNING
     Dates: start: 20090101
  4. DIOVAN [Concomitant]
     Indication: BLOOD PRESSURE
     Dosage: 160 MG, ONE IN MORNING
     Dates: start: 20070917
  5. NEXIUM [Concomitant]
     Indication: GASTRIC DISORDER
     Dosage: 40 MG, ONE AS NEEDED
     Dates: start: 20040407

REACTIONS (5)
  - DIPLOPIA [None]
  - RETINAL DEGENERATION [None]
  - RETINAL DETACHMENT [None]
  - CONJUNCTIVITIS [None]
  - EYE PAIN [None]
